FAERS Safety Report 9567458 (Version 2)
Quarter: 2013Q3

REPORT INFORMATION
  Report Type: Spontaneous
  Country: US (occurrence: US)
  Receive Date: 20130930
  Receipt Date: 20130930
  Transmission Date: 20140515
  Serious: No
  Sender: FDA-Public Use
  Company Number: US-AMGEN-USASP2012018199

PATIENT
  Age: 46 Year
  Sex: Male
  Weight: 82.99 kg

DRUGS (1)
  1. ENBREL [Suspect]
     Indication: PSORIASIS
     Dosage: 50 MG, QWK
     Route: 030
     Dates: start: 20120514

REACTIONS (2)
  - Fatigue [Recovering/Resolving]
  - Weight decreased [Recovering/Resolving]
